FAERS Safety Report 5721730-5 (Version None)
Quarter: 2008Q2

REPORT INFORMATION
  Report Type: 
  Country: None (occurrence: None)
  Receive Date: 20080429
  Receipt Date: 20070412
  Transmission Date: 20081010
  Serious: No
  Sender: FDA-Public Use
  Company Number: US-ASTRAZENECA-2007UW07212

PATIENT
  Age: 88 Year
  Sex: Female
  Weight: 77.1 kg

DRUGS (5)
  1. NEXIUM [Suspect]
     Indication: DYSPEPSIA
     Route: 048
  2. TOPROL-XL [Concomitant]
  3. ADALAT [Concomitant]
  4. PLENDIL [Concomitant]
  5. MOTRIN [Concomitant]

REACTIONS (1)
  - FAECES DISCOLOURED [None]
